FAERS Safety Report 18691567 (Version 7)
Quarter: 2021Q4

REPORT INFORMATION
  Report Type: Report from Study
  Country: US (occurrence: US)
  Receive Date: 20210101
  Receipt Date: 20211213
  Transmission Date: 20220303
  Serious: Yes (Hospitalization, Other)
  Sender: FDA-Public Use
  Company Number: NVSC2020US341795

PATIENT
  Age: 34 Year
  Sex: Male

DRUGS (1)
  1. ENTRESTO [Suspect]
     Active Substance: SACUBITRIL\VALSARTAN
     Indication: Cardiac failure
     Dosage: 50 MG, BID, (24/26 MG)
     Route: 048
     Dates: start: 20201201

REACTIONS (4)
  - Hernia [Recovered/Resolved]
  - Weight decreased [Unknown]
  - Insomnia [Unknown]
  - Ankle fracture [Unknown]

NARRATIVE: CASE EVENT DATE: 20210113
